FAERS Safety Report 6875320-1 (Version None)
Quarter: 2010Q3

REPORT INFORMATION
  Report Type: 
  Country: None (occurrence: None)
  Receive Date: 20100727
  Receipt Date: 20070702
  Transmission Date: 20110219
  Serious: Yes (Death, Other)
  Sender: FDA-Public Use
  Company Number: US-PFIZER INC-2005124401

PATIENT
  Sex: Female
  Weight: 74.8 kg

DRUGS (6)
  1. CELEBREX [Suspect]
     Indication: PAIN
     Dates: start: 20030904, end: 20041120
  2. CELEBREX [Suspect]
     Indication: ARTHRITIS
  3. MAXZIDE [Concomitant]
  4. ADIPEX [Concomitant]
  5. ESTRADIOL [Concomitant]
  6. MEDROXYPROGESTERONE [Concomitant]

REACTIONS (1)
  - MYOCARDIAL INFARCTION [None]
